FAERS Safety Report 4831846-3 (Version None)
Quarter: 2005Q4

REPORT INFORMATION
  Report Type: 
  Country: None (occurrence: None)
  Receive Date: 20051116
  Receipt Date: 20051031
  Transmission Date: 20060501
  Serious: Yes (Death, Hospitalization)
  Sender: FDA-Public Use
  Company Number: US015975

PATIENT
  Age: 57 Year
  Sex: Male
  Weight: 60.782 kg

DRUGS (2)
  1. TRISENOX [Suspect]
     Indication: ACUTE MYELOID LEUKAEMIA
     Dosage: 15 MG QD INTRAVENOUS DRIP
     Route: 041
     Dates: start: 20050829
  2. CYTARABINE [Suspect]
     Dosage: 17.5 MG QD SUBCUTANEOUS
     Route: 058
     Dates: start: 20050829

REACTIONS (3)
  - ACUTE MYELOID LEUKAEMIA [None]
  - FEBRILE NEUTROPENIA [None]
  - MALIGNANT NEOPLASM PROGRESSION [None]
